FAERS Safety Report 9333314 (Version 2)
Quarter: 2013Q2

REPORT INFORMATION
  Report Type: Spontaneous
  Country: JP (occurrence: JP)
  Receive Date: 20130606
  Receipt Date: 20130624
  Transmission Date: 20140414
  Serious: No
  Sender: FDA-Public Use
  Company Number: JP-JNJFOC-20130523314

PATIENT
  Age: 60 Year
  Sex: Male

DRUGS (2)
  1. NEOPERIDOL [Suspect]
     Indication: PRODUCT USED FOR UNKNOWN INDICATION
     Route: 030
  2. HIBERNA [Concomitant]
     Route: 065

REACTIONS (1)
  - Injection site induration [Recovered/Resolved]
